FAERS Safety Report 19222756 (Version 2)
Quarter: 2023Q2

REPORT INFORMATION
  Report Type: Spontaneous
  Country: AR (occurrence: AR)
  Receive Date: 20210506
  Receipt Date: 20230403
  Transmission Date: 20230721
  Serious: Yes (Other)
  Sender: FDA-Public Use
  Company Number: AR-PFIZER INC-2021465096

PATIENT
  Age: 74 Year
  Sex: Female

DRUGS (3)
  1. IBRANCE [Suspect]
     Active Substance: PALBOCICLIB
     Indication: Breast cancer metastatic
     Dosage: 125 MG, CYCLIC (DAILY, SCHEME 3X1)
     Dates: start: 20210305
  2. IBRANCE [Suspect]
     Active Substance: PALBOCICLIB
     Dosage: 125 MG, CYCLIC (DAILY, SCHEME 3X1)
  3. FULVESTRANT [Concomitant]
     Active Substance: FULVESTRANT

REACTIONS (4)
  - Diabetes mellitus [Unknown]
  - Blood pressure abnormal [Unknown]
  - Tumour marker abnormal [Unknown]
  - Myopia [Unknown]
